FAERS Safety Report 5198892-4 (Version None)
Quarter: 2007Q1

REPORT INFORMATION
  Report Type: 
  Country: None (occurrence: None)
  Receive Date: 20070104
  Receipt Date: 20070104
  Transmission Date: 20070707
  Serious: Yes (Other)
  Sender: FDA-Public Use
  Company Number: PHNU2006DE02947

PATIENT
  Age: 73 Year
  Sex: Female

DRUGS (4)
  1. FEMARA [Concomitant]
     Indication: BREAST CANCER METASTATIC
     Dosage: 2.5 MG, QD
     Route: 048
     Dates: start: 20051001
  2. ZOMETA [Suspect]
     Indication: METASTASES TO BONE
     Dosage: 4 MG, QMO
     Route: 042
     Dates: start: 20041124, end: 20060301
  3. ARIMIDEX [Concomitant]
     Route: 048
     Dates: start: 20041201
  4. AROMASIN [Concomitant]
     Route: 048
     Dates: start: 20041101

REACTIONS (10)
  - BONE FORMATION DECREASED [None]
  - DENTAL TREATMENT [None]
  - FISTULA [None]
  - LOCALISED INFECTION [None]
  - LOOSE TOOTH [None]
  - OSTEOMYELITIS [None]
  - OSTEONECROSIS [None]
  - PERIODONTITIS [None]
  - TOOTH EXTRACTION [None]
  - X-RAY ABNORMAL [None]
